APPROVED DRUG PRODUCT: POTASSIUM PHOSPHATES
Active Ingredient: POTASSIUM PHOSPHATE, DIBASIC; POTASSIUM PHOSPHATE, MONOBASIC
Strength: 3.54GM/15ML (236MG/ML);3.36GM/15ML (224MG/ML)
Dosage Form/Route: SOLUTION;INTRAVENOUS
Application: N212832 | Product #002 | TE Code: AP
Applicant: FRESENIUS KABI USA LLC
Approved: Nov 26, 2019 | RLD: Yes | RS: Yes | Type: RX